FAERS Safety Report 11222530 (Version 1)
Quarter: 2015Q2

REPORT INFORMATION
  Report Type: Spontaneous
  Country: PT (occurrence: PT)
  Receive Date: 20150626
  Receipt Date: 20150626
  Transmission Date: 20150821
  Serious: Yes (Hospitalization, Other)
  Sender: FDA-Public Use
  Company Number: PT-PFIZER INC-2015209191

PATIENT
  Age: 75 Year
  Sex: Female

DRUGS (3)
  1. DESLORATADINE. [Concomitant]
     Active Substance: DESLORATADINE
     Dosage: UNK
  2. AZITHROMYCIN [Suspect]
     Active Substance: AZITHROMYCIN ANHYDROUS
     Dosage: UNK
  3. ACETYLCYSTEINE. [Concomitant]
     Active Substance: ACETYLCYSTEINE
     Dosage: UNK

REACTIONS (1)
  - Tubulointerstitial nephritis [Recovered/Resolved]
